FAERS Safety Report 12207037 (Version 2)
Quarter: 2016Q2

REPORT INFORMATION
  Report Type: Spontaneous
  Country: US (occurrence: US)
  Receive Date: 20160324
  Receipt Date: 20160502
  Transmission Date: 20160815
  Serious: No
  Sender: FDA-Public Use
  Company Number: US-JNJFOC-20160224323

PATIENT
  Age: 36 Year
  Sex: Female
  Weight: 63.5 kg

DRUGS (5)
  1. REMICADE [Suspect]
     Active Substance: INFLIXIMAB
     Indication: CROHN^S DISEASE
     Dosage: STARTER DOSES
     Route: 042
     Dates: start: 20150813, end: 201508
  2. MERCAPTOPURINE. [Concomitant]
     Active Substance: MERCAPTOPURINE
     Indication: CROHN^S DISEASE
     Route: 048
     Dates: start: 201303
  3. DAYSEE [Concomitant]
     Active Substance: ETHINYL ESTRADIOL\LEVONORGESTREL
     Indication: CONTRACEPTION
     Route: 048
     Dates: start: 201303
  4. REMICADE [Suspect]
     Active Substance: INFLIXIMAB
     Indication: CROHN^S DISEASE
     Dosage: SECOND TREATMENT
     Route: 042
     Dates: start: 20150826, end: 20150826
  5. REMICADE [Suspect]
     Active Substance: INFLIXIMAB
     Indication: CROHN^S DISEASE
     Route: 042
     Dates: start: 2001, end: 2001

REACTIONS (8)
  - Hypokinesia [Recovered/Resolved]
  - Malaise [Recovered/Resolved]
  - Muscular weakness [Recovered/Resolved]
  - Hypertension [Unknown]
  - Musculoskeletal stiffness [Recovered/Resolved]
  - Rash [Recovered/Resolved]
  - Pain in extremity [Recovered/Resolved]
  - Chest pain [Recovered/Resolved]

NARRATIVE: CASE EVENT DATE: 20150813
